FAERS Safety Report 10880919 (Version 1)
Quarter: 2015Q1

REPORT INFORMATION
  Report Type: Spontaneous
  Country: JP (occurrence: None)
  Receive Date: 20150225
  Receipt Date: 20150225
  Transmission Date: 20150721
  Serious: Yes (Life-Threatening)
  Sender: FDA-Public Use
  Company Number: 2014BCR01176

PATIENT
  Age: 73 Year
  Sex: Female

DRUGS (3)
  1. RAPIACTA [Suspect]
     Active Substance: PERAMIVIR
     Indication: INFLUENZA
     Route: 042
     Dates: start: 20140128, end: 20140128
  2. PREDNISOLONE. [Concomitant]
     Active Substance: PREDNISOLONE
  3. TACROLIMUS HYDRATE [Concomitant]
     Active Substance: TACROLIMUS

REACTIONS (6)
  - Myasthenia gravis crisis [None]
  - Respiratory arrest [None]
  - Pneumonia pneumococcal [None]
  - Cardiac arrest [None]
  - Respiratory muscle weakness [None]
  - Blood pressure decreased [None]

NARRATIVE: CASE EVENT DATE: 20140128
